FAERS Safety Report 9745409 (Version 1)
Quarter: 2013Q4

REPORT INFORMATION
  Report Type: Spontaneous
  Country: US (occurrence: None)
  Receive Date: 20131206
  Receipt Date: 20131206
  Transmission Date: 20140711
  Serious: No
  Sender: FDA-Public Use
  Company Number: None

PATIENT
  Age: 69 Year
  Sex: Female
  Weight: 68.49 kg

DRUGS (1)
  1. IRBESARTAN [Suspect]
     Route: 048
     Dates: start: 20131201, end: 20131205

REACTIONS (7)
  - Dizziness [None]
  - Dizziness [None]
  - Gastrointestinal disorder [None]
  - Device malfunction [None]
  - Blood pressure decreased [None]
  - Blood pressure increased [None]
  - Product substitution issue [None]
